FAERS Safety Report 9453083 (Version 1)
Quarter: 2013Q3

REPORT INFORMATION
  Report Type: Spontaneous
  Country: US (occurrence: US)
  Receive Date: 20130812
  Receipt Date: 20130812
  Transmission Date: 20140515
  Serious: No
  Sender: FDA-Public Use
  Company Number: US-BAXTER-2013BAX029849

PATIENT
  Age: 75 Year
  Sex: Male

DRUGS (1)
  1. DIANEAL LOW CALCIUM [Suspect]
     Indication: PERITONEAL DIALYSIS
     Route: 033
     Dates: start: 201304

REACTIONS (9)
  - Back pain [Unknown]
  - Procedural complication [Recovered/Resolved]
  - Feeling abnormal [Recovered/Resolved]
  - Musculoskeletal pain [Recovered/Resolved]
  - Abdominal distension [Recovered/Resolved]
  - Nausea [Unknown]
  - Constipation [Recovered/Resolved]
  - Musculoskeletal pain [Unknown]
  - Abdominal pain upper [Unknown]
